FAERS Safety Report 5811311-7 (Version None)
Quarter: 2008Q3

REPORT INFORMATION
  Report Type: 
  Country: None (occurrence: None)
  Receive Date: 20080710
  Receipt Date: 20080626
  Transmission Date: 20090109
  Serious: Yes (Other)
  Sender: FDA-Public Use
  Company Number: S08-ESP-02260-01

PATIENT
  Age: 51 Year
  Sex: Male
  Weight: 75 kg

DRUGS (1)
  1. ESCITALOPRAM [Suspect]
     Indication: ASTHENIA
     Dosage: 10 MG QD PO
     Route: 048
     Dates: start: 20080425

REACTIONS (1)
  - OCULAR HYPERTENSION [None]
